FAERS Safety Report 7570392-3 (Version None)
Quarter: 2011Q2

REPORT INFORMATION
  Report Type: 
  Country: None (occurrence: None)
  Receive Date: 20110622
  Receipt Date: 20110622
  Transmission Date: 20111010
  Serious: Yes (Other)
  Sender: FDA-Public Use
  Company Number: None

PATIENT
  Sex: Female
  Weight: 73.0291 kg

DRUGS (1)
  1. PARAGARD T 380A [Suspect]
     Indication: CONTRACEPTION
     Dosage: INTRAUTERINE DEVICE
     Route: 015
     Dates: start: 20091211, end: 20110610

REACTIONS (1)
  - PREGNANCY WITH CONTRACEPTIVE DEVICE [None]
